FAERS Safety Report 16221270 (Version 2)
Quarter: 2019Q2

REPORT INFORMATION
  Report Type: Spontaneous
  Country: IT (occurrence: IT)
  Receive Date: 20190422
  Receipt Date: 20190611
  Transmission Date: 20190711
  Serious: Yes (Death, Hospitalization)
  Sender: FDA-Public Use
  Company Number: IT-ACCORD-121839

PATIENT
  Age: 27 Year
  Sex: Male

DRUGS (4)
  1. DIAZEPAM. [Suspect]
     Active Substance: DIAZEPAM
     Indication: MENTAL DISORDER
  2. CLOTIAPINE [Suspect]
     Active Substance: CLOTHIAPINE
     Indication: MENTAL DISORDER
  3. METHADONE [Suspect]
     Active Substance: METHADONE HYDROCHLORIDE
     Indication: MENTAL DISORDER
     Dosage: INITIAL DOSE OF 10 MG, INCREASED TO 50 MG?WITHIN TWO DAYS.
  4. QUETIAPINE. [Suspect]
     Active Substance: QUETIAPINE
     Indication: MENTAL DISORDER

REACTIONS (5)
  - Brain oedema [Fatal]
  - Depressed level of consciousness [Fatal]
  - Visceral congestion [Fatal]
  - Pulmonary oedema [Fatal]
  - Left ventricular hypertrophy [Fatal]
